FAERS Safety Report 10885202 (Version 1)
Quarter: 2015Q1

REPORT INFORMATION
  Report Type: Spontaneous
  Country: US (occurrence: US)
  Receive Date: 20150304
  Receipt Date: 20150304
  Transmission Date: 20150721
  Serious: Yes (Death)
  Sender: FDA-Public Use
  Company Number: US-BANPHARM-20153619

PATIENT
  Age: 9 Month
  Sex: Male

DRUGS (2)
  1. DIPHENHYDRAMINE UNKNOWN PRODUCT [Suspect]
     Active Substance: DIPHENHYDRAMINE
  2. AMITRIPTYLINE [Suspect]
     Active Substance: AMITRIPTYLINE

REACTIONS (7)
  - Death [Fatal]
  - Brain oedema [None]
  - Bronchopneumonia [None]
  - Toxicity to various agents [None]
  - Victim of homicide [None]
  - Pulse absent [None]
  - Unresponsive to stimuli [None]
